FAERS Safety Report 8449685-3 (Version None)
Quarter: 2012Q2

REPORT INFORMATION
  Report Type: 
  Country: None (occurrence: None)
  Receive Date: 20120620
  Receipt Date: 20120615
  Transmission Date: 20120825
  Serious: Yes (Death)
  Sender: FDA-Public Use
  Company Number: US-PFIZER INC-2012045427

PATIENT
  Sex: Female

DRUGS (5)
  1. SUTENT [Suspect]
     Indication: RENAL CELL CARCINOMA
     Dosage: 25 UNK, UNK
     Dates: start: 20090729, end: 20120212
  2. ROXANOL [Concomitant]
     Dosage: 20 MG/ML, 0.5 TO 1 ML OF 1 TO 2 HRS
     Dates: end: 20120212
  3. LORAZEPAM [Concomitant]
     Dosage: 0.5 TO 1MG
     Route: 048
     Dates: end: 20120212
  4. CYMBALTA [Concomitant]
     Indication: DEPRESSION
     Dosage: UNK
     Dates: start: 20111108, end: 20120117
  5. SUTENT [Suspect]
     Dosage: 25 MG 4WKS ON AND 2WKS OFF ALTERNATING WITH 50 MG
     Dates: start: 20100804, end: 20120125

REACTIONS (2)
  - RENAL CANCER [None]
  - DISEASE PROGRESSION [None]
